FAERS Safety Report 9119171 (Version 1)
Quarter: 2013Q1

REPORT INFORMATION
  Report Type: Spontaneous
  Country: DK (occurrence: None)
  Receive Date: 20130130
  Receipt Date: 20130130
  Transmission Date: 20140127
  Serious: Yes (Disabling)
  Sender: FDA-Public Use
  Company Number: DK-SEPTODONT-200500714

PATIENT
  Age: 60 Year
  Sex: Female

DRUGS (1)
  1. SEPTANEST (ARTICAINE HCL 4% AND EPINEPHRINE) [Suspect]
     Indication: LOCAL ANAESTHESIA
     Dosage: 1 ML OF SEPTOCAINE 40 MG/ML+10 MCG/ML SOLUTION FOR INJECTION.
     Dates: start: 20040217

REACTIONS (3)
  - Trigeminal neuralgia [None]
  - Speech disorder [None]
  - Dysgeusia [None]
